FAERS Safety Report 6582264-1 (Version None)
Quarter: 2010Q1

REPORT INFORMATION
  Report Type: 
  Country: None (occurrence: None)
  Receive Date: 20100216
  Receipt Date: 20091116
  Transmission Date: 20100710
  Serious: No
  Sender: FDA-Public Use
  Company Number: A0817226A

PATIENT
  Age: 57 Year
  Sex: Female

DRUGS (2)
  1. VERAMYST [Suspect]
     Dosage: 1PUFF TWICE PER DAY
     Route: 045
     Dates: start: 20091104, end: 20091112
  2. ANTIBIOTIC [Concomitant]

REACTIONS (1)
  - HAEMATOMA [None]
